FAERS Safety Report 9768833 (Version 2)
Quarter: 2013Q4

REPORT INFORMATION
  Report Type: Other
  Country: JP (occurrence: JP)
  Receive Date: 20131218
  Receipt Date: 20131218
  Transmission Date: 20140711
  Serious: Yes (Other)
  Sender: FDA-Public Use
  Company Number: JP-BRISTOL-MYERS SQUIBB COMPANY-19890904

PATIENT
  Sex: Female

DRUGS (4)
  1. MITOMYCIN-C [Suspect]
     Indication: CERVIX CARCINOMA
  2. CISPLATIN [Suspect]
     Indication: CERVIX CARCINOMA
  3. 5-FLUOROURACIL [Suspect]
     Indication: CERVIX CARCINOMA
  4. PIRARUBICIN HCL [Suspect]
     Indication: CERVIX CARCINOMA

REACTIONS (1)
  - Haemolytic uraemic syndrome [Unknown]
